FAERS Safety Report 20987238 (Version 1)
Quarter: 2022Q2

REPORT INFORMATION
  Report Type: Spontaneous
  Country: US (occurrence: None)
  Receive Date: 20220619
  Receipt Date: 20220619
  Transmission Date: 20220721
  Serious: Yes (Other)
  Sender: FDA-Public Use
  Company Number: None

PATIENT
  Age: 49 Year
  Sex: Female
  Weight: 56.25 kg

DRUGS (3)
  1. YUVAFEM [Suspect]
     Active Substance: ESTRADIOL HEMIHYDRATE
     Indication: Atrophic vulvovaginitis
     Dosage: FREQUENCY : AT BEDTIME;?
     Route: 067
     Dates: start: 20211029
  2. PREDNISONE [Concomitant]
     Active Substance: PREDNISONE
  3. VITAMINS [Concomitant]
     Active Substance: VITAMINS

REACTIONS (6)
  - Headache [None]
  - Pain of skin [None]
  - Skin burning sensation [None]
  - Retinal detachment [None]
  - Glaucoma [None]
  - Carotid artery aneurysm [None]

NARRATIVE: CASE EVENT DATE: 20220616
